FAERS Safety Report 7170500-2 (Version None)
Quarter: 2010Q4

REPORT INFORMATION
  Report Type: 
  Country: None (occurrence: None)
  Receive Date: 20101123
  Receipt Date: 20100917
  Transmission Date: 20110411
  Serious: No
  Sender: FDA-Public Use
  Company Number: 018990

PATIENT
  Sex: Male

DRUGS (1)
  1. CIMZIA [Suspect]
     Indication: CROHN'S DISEASE
     Dosage: 2 SYRINGES ONCE EVERY 4 WEEKS SUBCUTANEOUS
     Route: 058
     Dates: start: 20091017

REACTIONS (4)
  - GASTROINTESTINAL PAIN [None]
  - HEADACHE [None]
  - RHINORRHOEA [None]
  - THROAT IRRITATION [None]
